FAERS Safety Report 10244889 (Version 2)
Quarter: 2014Q3

REPORT INFORMATION
  Report Type: Spontaneous
  Country: US (occurrence: US)
  Receive Date: 20140618
  Receipt Date: 20140912
  Transmission Date: 20150326
  Serious: No
  Sender: FDA-Public Use
  Company Number: US-GALDERMA-US14001398

PATIENT
  Age: 43 Year
  Sex: Female

DRUGS (6)
  1. MIRVASO [Suspect]
     Active Substance: BRIMONIDINE TARTRATE
     Indication: ROSACEA
     Dosage: 0.33%
     Route: 061
     Dates: start: 20140329, end: 20140406
  2. AVEENO ULTRA CALMING DAILY MOSITURIZER [Concomitant]
     Indication: DRY SKIN PROPHYLAXIS
     Route: 061
  3. METRONIDAZOLE LOTION (METRONIDAZOLE) 0.75% [Concomitant]
     Indication: ROSACEA
     Route: 061
     Dates: start: 1999
  4. CETAPHIL [Concomitant]
     Active Substance: AVOBENZONE\OCTOCRYLENE\TRICLOSAN
     Indication: THERAPEUTIC SKIN CARE TOPICAL
     Route: 061
  5. METROCREAM (METRONIDAZOLE) TOPICAL CREAM, 0.75% [Concomitant]
     Dosage: 0.75%
     Route: 061
  6. DOXYCYCLINE. [Concomitant]
     Active Substance: DOXYCYCLINE
     Dosage: 100 MG
     Route: 048

REACTIONS (9)
  - Condition aggravated [Recovered/Resolved]
  - Emotional distress [Recovered/Resolved]
  - Flushing [Recovered/Resolved]
  - Off label use [Recovered/Resolved]
  - Incorrect dose administered [Recovered/Resolved]
  - Erythema [Recovered/Resolved]
  - Skin fragility [Recovered/Resolved]
  - Drug ineffective for unapproved indication [Recovered/Resolved]
  - Rebound effect [Recovered/Resolved]

NARRATIVE: CASE EVENT DATE: 20140329
